FAERS Safety Report 15341937 (Version 1)
Quarter: 2018Q3

REPORT INFORMATION
  Report Type: Spontaneous
  Country: US (occurrence: US)
  Receive Date: 20180828
  Receipt Date: 20180828
  Transmission Date: 20181010
  Serious: No
  Sender: FDA-Public Use
  Company Number: None

PATIENT
  Age: 62 Year
  Sex: Female
  Weight: 96.75 kg

DRUGS (2)
  1. SYNTHROID [Concomitant]
     Active Substance: LEVOTHYROXINE SODIUM
  2. NERLYNX [Suspect]
     Active Substance: NERATINIB
     Indication: BREAST CANCER
     Dosage: ?          QUANTITY:180 TABLET(S);?
     Route: 048
     Dates: start: 20180627, end: 20180808

REACTIONS (4)
  - Wound haemorrhage [None]
  - Animal scratch [None]
  - Skin atrophy [None]
  - Contusion [None]

NARRATIVE: CASE EVENT DATE: 20180807
